FAERS Safety Report 9312890 (Version 4)
Quarter: 2014Q3

REPORT INFORMATION
  Report Type: Spontaneous
  Country: US (occurrence: US)
  Receive Date: 20130528
  Receipt Date: 20140714
  Transmission Date: 20150326
  Serious: No
  Sender: FDA-Public Use
  Company Number: US-009507513-1305USA012274

PATIENT
  Sex: Male

DRUGS (1)
  1. PROPECIA [Suspect]
     Active Substance: FINASTERIDE
     Indication: ALOPECIA
     Dosage: 1 MG, QD
     Route: 048
     Dates: start: 200006, end: 20111104

REACTIONS (16)
  - Penis injury [Unknown]
  - Sexual dysfunction [Not Recovered/Not Resolved]
  - Testicular atrophy [Unknown]
  - Androgens abnormal [Unknown]
  - Depression [Not Recovered/Not Resolved]
  - Genital discomfort [Unknown]
  - Erectile dysfunction [Not Recovered/Not Resolved]
  - Penis disorder [Unknown]
  - Weight increased [Unknown]
  - Testis discomfort [Unknown]
  - Anxiety [Not Recovered/Not Resolved]
  - Penile size reduced [Unknown]
  - Nipple pain [Unknown]
  - Brain injury [Unknown]
  - Loss of libido [Unknown]
  - Gynaecomastia [Unknown]

NARRATIVE: CASE EVENT DATE: 2000
